FAERS Safety Report 7590078-9 (Version None)
Quarter: 2011Q3

REPORT INFORMATION
  Report Type: 
  Country: None (occurrence: None)
  Receive Date: 20110705
  Receipt Date: 20110329
  Transmission Date: 20111222
  Serious: Yes (Death)
  Sender: FDA-Public Use
  Company Number: B0710147A

PATIENT
  Sex: Female
  Weight: 14 kg

DRUGS (18)
  1. NEO-MINOPHAGEN-C [Concomitant]
     Route: 042
     Dates: start: 20070109, end: 20070119
  2. ALKERAN [Suspect]
     Dosage: 70MGM2 PER DAY
     Route: 042
     Dates: start: 20070111, end: 20070112
  3. SOLDEM [Concomitant]
     Route: 042
     Dates: end: 20070106
  4. ELEMENMIC [Concomitant]
     Route: 042
     Dates: start: 20070107, end: 20070129
  5. FULCALIQ [Concomitant]
     Route: 042
     Dates: start: 20070108, end: 20070129
  6. URSO 250 [Concomitant]
     Route: 048
     Dates: end: 20070201
  7. RAMELTEON [Concomitant]
     Route: 042
     Dates: start: 20070111, end: 20070113
  8. THIOTEPA [Suspect]
     Indication: STEM CELL TRANSPLANT
     Dosage: 200MGM2 PER DAY
     Dates: start: 20070104, end: 20070105
  9. CEFOTIAM HYDROCHLORIDE [Concomitant]
     Route: 042
     Dates: start: 20070110, end: 20070113
  10. HEPARIN [Concomitant]
     Dates: end: 20070129
  11. ALKERAN [Suspect]
     Indication: STEM CELL TRANSPLANT
     Dosage: 70MGM2 PER DAY
     Route: 042
     Dates: start: 20070104, end: 20070105
  12. THIOTEPA [Suspect]
     Dosage: 200MGM2 PER DAY
     Dates: start: 20070111, end: 20070112
  13. MEDICON [Concomitant]
     Route: 048
     Dates: start: 20070112, end: 20070201
  14. MUCODYNE [Concomitant]
     Route: 048
     Dates: start: 20070112, end: 20070201
  15. FLUCONAZOLE [Concomitant]
     Route: 042
     Dates: start: 20070110, end: 20070118
  16. POTASSIUM CHLORIDE [Concomitant]
     Route: 042
     Dates: end: 20070113
  17. RAMELTEON [Concomitant]
     Route: 042
     Dates: end: 20070106
  18. LEPETAN [Concomitant]
     Dates: start: 20070112, end: 20070120

REACTIONS (14)
  - PAIN [None]
  - MUCOUS MEMBRANE DISORDER [None]
  - HYPONATRAEMIA [None]
  - BLOOD SODIUM INCREASED [None]
  - FEBRILE NEUTROPENIA [None]
  - RENAL IMPAIRMENT [None]
  - RESPIRATORY SYNCYTIAL VIRUS INFECTION [None]
  - RESPIRATORY ACIDOSIS [None]
  - INTERSTITIAL LUNG DISEASE [None]
  - HEPATIC FUNCTION ABNORMAL [None]
  - ANTITHROMBIN III DECREASED [None]
  - ASPARTATE AMINOTRANSFERASE INCREASED [None]
  - HYPERKALAEMIA [None]
  - BLOOD LACTATE DEHYDROGENASE INCREASED [None]
